FAERS Safety Report 15462690 (Version 3)
Quarter: 2018Q4

REPORT INFORMATION
  Report Type: Report from Study
  Country: None (occurrence: JP)
  Receive Date: 20181004
  Receipt Date: 20181120
  Transmission Date: 20190204
  Serious: Yes (Death)
  Sender: FDA-Public Use
  Company Number: JP-ABBVIE-18S-087-2508399-00

PATIENT
  Age: 66 Year
  Sex: Male
  Weight: 66 kg

DRUGS (5)
  1. DUODOPA [Suspect]
     Active Substance: CARBIDOPA\LEVODOPA
     Dosage: MD: 9 ML, CD: 3.7 ML/HR X 16 HR, ED: 1 ML/UNIT X 5
     Route: 050
     Dates: start: 20161118
  2. MENESIT [Concomitant]
     Active Substance: CARBIDOPA\LEVODOPA
     Indication: PARKINSON^S DISEASE
     Route: 048
     Dates: start: 200712
  3. ENTACAPONE. [Concomitant]
     Active Substance: ENTACAPONE
     Indication: PRODUCT USED FOR UNKNOWN INDICATION
     Route: 048
  4. RIVASTIGMINE. [Concomitant]
     Active Substance: RIVASTIGMINE
     Indication: COGNITIVE DISORDER
     Route: 062
  5. DUODOPA [Suspect]
     Active Substance: CARBIDOPA\LEVODOPA
     Indication: PRODUCT USED FOR UNKNOWN INDICATION
     Dosage: MD: 6 ML, CD: 3.8 ML/HR X 16 HR, ED: 1 ML/UNIT X 3
     Route: 050
     Dates: start: 20161110, end: 20161118

REACTIONS (4)
  - Cardiac disorder [Fatal]
  - Abdominal pain [Unknown]
  - Stoma site discharge [Unknown]
  - Stoma site pain [Unknown]

NARRATIVE: CASE EVENT DATE: 2016
